FAERS Safety Report 6542378-9 (Version None)
Quarter: 2010Q1

REPORT INFORMATION
  Report Type: 
  Country: None (occurrence: None)
  Receive Date: 20100119
  Receipt Date: 20090522
  Transmission Date: 20100710
  Serious: Yes (Other)
  Sender: FDA-Public Use
  Company Number: US-BAYER-200917976NA

PATIENT
  Age: 42 Year
  Sex: Female
  Weight: 84 kg

DRUGS (27)
  1. MAGNEVIST [Suspect]
     Indication: NUCLEAR MAGNETIC RESONANCE IMAGING
     Route: 042
     Dates: start: 20040914, end: 20040914
  2. MAGNEVIST [Suspect]
     Route: 042
     Dates: start: 20050120, end: 20050120
  3. OMNISCAN [Suspect]
     Indication: NUCLEAR MAGNETIC RESONANCE IMAGING BRAIN
     Dosage: TOTAL DAILY DOSE: 7.5 ML
     Route: 042
     Dates: start: 20010322, end: 20010322
  4. OMNISCAN [Suspect]
     Dosage: TOTAL DAILY DOSE: 8.0 ML
     Route: 042
     Dates: start: 20051229, end: 20051229
  5. OMNISCAN [Suspect]
     Dosage: TOTAL DAILY DOSE: 19 ML
     Route: 042
     Dates: start: 20040813, end: 20040813
  6. ZYRTEC [Concomitant]
  7. TAGAMET [Concomitant]
  8. RENAGEL [Concomitant]
  9. METOPROLOL [Concomitant]
  10. LIPITOR [Concomitant]
  11. EFFEXOR [Concomitant]
  12. DEPAKOTE [Concomitant]
  13. VISTARIL [Concomitant]
  14. BENADRYL [Concomitant]
  15. HYDROCORTISONE [Concomitant]
     Indication: URTICARIA
  16. RENVELA [Concomitant]
  17. EPO [Concomitant]
  18. SYNTHROID [Concomitant]
  19. LORTAB [Concomitant]
  20. TRICOR [Concomitant]
  21. IRON SUPPLEMENT [Concomitant]
  22. ROCEPHIN [Concomitant]
  23. VITAMIN TAB [Concomitant]
  24. COUMADIN [Concomitant]
  25. CELLCEPT [Concomitant]
  26. PROGRAF [Concomitant]
  27. K PHOS-NEUTRA [Concomitant]

REACTIONS (35)
  - ABDOMINAL PAIN UPPER [None]
  - ANHEDONIA [None]
  - ANXIETY [None]
  - ARTHRALGIA [None]
  - BURNING SENSATION [None]
  - DRY SKIN [None]
  - DYSSTASIA [None]
  - EMOTIONAL DISTRESS [None]
  - ERYTHEMA [None]
  - GAIT DISTURBANCE [None]
  - HYPOAESTHESIA [None]
  - LIMB DISCOMFORT [None]
  - LOWER EXTREMITY MASS [None]
  - MOTOR DYSFUNCTION [None]
  - MUSCLE DISORDER [None]
  - MUSCLE TIGHTNESS [None]
  - MUSCLE TWITCHING [None]
  - MUSCULAR WEAKNESS [None]
  - MUSCULOSKELETAL CHEST PAIN [None]
  - MUSCULOSKELETAL DISCOMFORT [None]
  - NEPHROGENIC SYSTEMIC FIBROSIS [None]
  - OEDEMA [None]
  - OEDEMA PERIPHERAL [None]
  - PAIN [None]
  - PAIN IN EXTREMITY [None]
  - PARAESTHESIA [None]
  - PRURITUS GENERALISED [None]
  - RASH MACULAR [None]
  - RASH PAPULAR [None]
  - SKIN HYPERTROPHY [None]
  - SKIN INDURATION [None]
  - SKIN PLAQUE [None]
  - SKIN TIGHTNESS [None]
  - SYSTEMIC SCLEROSIS [None]
  - VEIN DISORDER [None]
